FAERS Safety Report 7529469-0 (Version None)
Quarter: 2011Q2

REPORT INFORMATION
  Report Type: 
  Country: None (occurrence: None)
  Receive Date: 20110607
  Receipt Date: 20050510
  Transmission Date: 20111010
  Serious: Yes (Death, Hospitalization, Other)
  Sender: FDA-Public Use
  Company Number: PHFR2005GB01562

PATIENT
  Sex: Male

DRUGS (2)
  1. AMITRIPTYLINE HCL [Concomitant]
     Dosage: 150 MG/DAY
  2. CLOZARIL [Suspect]
     Indication: SCHIZOPHRENIA
     Dosage: UNK UKN, UNK
     Route: 048
     Dates: start: 19920925

REACTIONS (7)
  - WHITE BLOOD CELL COUNT INCREASED [None]
  - LIVER FUNCTION TEST ABNORMAL [None]
  - LUNG NEOPLASM MALIGNANT [None]
  - MALAISE [None]
  - BLOOD SODIUM DECREASED [None]
  - HEPATIC FUNCTION ABNORMAL [None]
  - NEUTROPHIL COUNT INCREASED [None]
